FAERS Safety Report 9416836 (Version 1)
Quarter: 2013Q3

REPORT INFORMATION
  Report Type: Spontaneous
  Country: US (occurrence: None)
  Receive Date: 20130719
  Receipt Date: 20130719
  Transmission Date: 20140515
  Serious: Yes (Death)
  Sender: FDA-Public Use
  Company Number: SYM-2013-06423

PATIENT
  Age: 32 Year
  Sex: Female

DRUGS (1)
  1. TARGRETIN GEL [Suspect]
     Indication: MYCOSIS FUNGOIDES
     Route: 061

REACTIONS (1)
  - Sepsis [None]
